FAERS Safety Report 4654878-7 (Version None)
Quarter: 2005Q2

REPORT INFORMATION
  Report Type: 
  Country: None (occurrence: None)
  Receive Date: 20050505
  Receipt Date: 20050427
  Transmission Date: 20051028
  Serious: Yes (Other)
  Sender: FDA-Public Use
  Company Number: CHPA2005US01184

PATIENT
  Age: 30 Year
  Sex: Female
  Weight: 61.2 kg

DRUGS (2)
  1. EX-LAX ULTRA LAXATIVE PILLS (NCH ) (BISACODYL)TABLET [Suspect]
     Indication: CONSTIPATION
     Dosage: 2 DF, ONCE/SINGLE, ORAL
     Route: 048
     Dates: start: 20050426, end: 20050426
  2. DIET FORMULATIONS FOR TREATMENT OF OBESITY (NO INGREDIENTS/SUBSTANCES) [Concomitant]

REACTIONS (8)
  - ABDOMINAL PAIN [None]
  - ABDOMINAL PAIN UPPER [None]
  - DEAFNESS [None]
  - DEFAECATION URGENCY [None]
  - HYPERHIDROSIS [None]
  - NAUSEA [None]
  - SYNCOPE [None]
  - TREMOR [None]
